FAERS Safety Report 9513511 (Version 1)
Quarter: 2013Q3

REPORT INFORMATION
  Report Type: Spontaneous
  Country: US (occurrence: US)
  Receive Date: 20130910
  Receipt Date: 20130910
  Transmission Date: 20140515
  Serious: No
  Sender: FDA-Public Use
  Company Number: US-TARO-2013P1010048

PATIENT
  Age: 58 Year
  Sex: Male
  Weight: 87.54 kg

DRUGS (5)
  1. WARFARIN SODIUM TABLETS USP 4MG [Suspect]
     Route: 048
  2. WARFARIN SODIUM TABLETS USP 6MG [Suspect]
     Route: 048
     Dates: start: 201305
  3. LISINOPRIL [Concomitant]
  4. HYDROCHLOROTHIAZIDE [Concomitant]
  5. ATORVASTATIN [Concomitant]

REACTIONS (2)
  - International normalised ratio decreased [Not Recovered/Not Resolved]
  - Product substitution issue [Unknown]
